FAERS Safety Report 21965432 (Version 1)
Quarter: 2023Q1

REPORT INFORMATION
  Report Type: Spontaneous
  Country: US (occurrence: US)
  Receive Date: 20230208
  Receipt Date: 20230208
  Transmission Date: 20230418
  Serious: No
  Sender: FDA-Public Use
  Company Number: US-GLENMARK PHARMACEUTICALS-2022GMK073022

PATIENT

DRUGS (2)
  1. ZONISAMIDE [Suspect]
     Active Substance: ZONISAMIDE
     Indication: Motor dysfunction
     Dosage: 1 DOSAGE FORM, BID
     Route: 048
  2. ZONISAMIDE [Suspect]
     Active Substance: ZONISAMIDE
     Dosage: 1 DOSAGE FORM, AM
     Route: 048

REACTIONS (5)
  - Abdominal discomfort [Not Recovered/Not Resolved]
  - Pain [Not Recovered/Not Resolved]
  - Recalled product administered [Unknown]
  - Abdominal pain upper [Unknown]
  - Drug ineffective for unapproved indication [Unknown]
